FAERS Safety Report 4945312-8 (Version None)
Quarter: 2006Q1

REPORT INFORMATION
  Report Type: 
  Country: None (occurrence: None)
  Receive Date: 20060315
  Receipt Date: 20060315
  Transmission Date: 20060701
  Serious: Yes (Other)
  Sender: FDA-Public Use
  Company Number: None

PATIENT
  Age: 46 Year
  Sex: Male
  Weight: 77.1115 kg

DRUGS (6)
  1. KETEK [Suspect]
     Indication: SINUSITIS
     Dosage: 2 TABLETS ONCE PO
     Route: 048
     Dates: start: 20060312, end: 20060312
  2. LAMICTAL [Concomitant]
  3. CONCERTA [Concomitant]
  4. INSULIN [Concomitant]
  5. CLARITIN [Concomitant]
  6. ADVAIR DISKUS 100/50 [Concomitant]

REACTIONS (6)
  - ELECTROCARDIOGRAM QT PROLONGED [None]
  - FALL [None]
  - LOSS OF CONSCIOUSNESS [None]
  - RESPIRATORY ARREST [None]
  - SEDATION [None]
  - VISUAL DISTURBANCE [None]
